FAERS Safety Report 6067906-1 (Version None)
Quarter: 2009Q1

REPORT INFORMATION
  Report Type: 
  Country: None (occurrence: None)
  Receive Date: 20090203
  Receipt Date: 20090122
  Transmission Date: 20090719
  Serious: Yes (Hospitalization)
  Sender: FDA-Public Use
  Company Number: DSA_32293_2008

PATIENT
  Age: 81 Year
  Sex: Male

DRUGS (2)
  1. LORAZEPAM [Suspect]
     Indication: ANXIETY DISORDER
     Dosage: (7.25 MG QD ORAL)
     Route: 048
     Dates: start: 20080201
  2. SIMVASTATIN [Suspect]
     Indication: DYSLIPIDAEMIA
     Dosage: (40 MG QD ORAL)
     Route: 048
     Dates: start: 20080201

REACTIONS (2)
  - DIALYSIS [None]
  - RHABDOMYOLYSIS [None]
